FAERS Safety Report 15496205 (Version 1)
Quarter: 2018Q4

REPORT INFORMATION
  Report Type: Spontaneous
  Country: AU (occurrence: AU)
  Receive Date: 20181012
  Receipt Date: 20181012
  Transmission Date: 20190205
  Serious: Yes (Other)
  Sender: FDA-Public Use
  Company Number: AU-GILEAD-2018-0367599

PATIENT
  Age: 55 Year
  Sex: Male

DRUGS (13)
  1. VIREAD [Suspect]
     Active Substance: TENOFOVIR DISOPROXIL FUMARATE
     Indication: HEPATITIS B
  2. EMTRIVA [Suspect]
     Active Substance: EMTRICITABINE
     Indication: HEPATITIS B
  3. DOLUTEGRAVIR [Suspect]
     Active Substance: DOLUTEGRAVIR
     Indication: HIV INFECTION
     Dosage: UNK
     Route: 065
  4. DOLUTEGRAVIR [Suspect]
     Active Substance: DOLUTEGRAVIR
     Indication: HEPATITIS B
  5. PYRAZINAMIDE. [Concomitant]
     Active Substance: PYRAZINAMIDE
  6. PYRIDOXINE [Concomitant]
     Active Substance: PYRIDOXINE
  7. VIREAD [Suspect]
     Active Substance: TENOFOVIR DISOPROXIL FUMARATE
     Indication: HIV INFECTION
     Dosage: UNK
     Route: 065
  8. RIFAMPICIN [Concomitant]
     Active Substance: RIFAMPIN
  9. ISONIAZID. [Concomitant]
     Active Substance: ISONIAZID
  10. PENTAMIDINE [Concomitant]
     Active Substance: PENTAMIDINE
  11. EMTRIVA [Suspect]
     Active Substance: EMTRICITABINE
     Indication: HIV INFECTION
     Dosage: UNK
     Route: 065
  12. ETHAMBUTOL [Concomitant]
     Active Substance: ETHAMBUTOL HYDROCHLORIDE
  13. PREDNISOLONE. [Concomitant]
     Active Substance: PREDNISOLONE
     Dosage: 1 MG/KG, UNK

REACTIONS (1)
  - Immune reconstitution inflammatory syndrome [Recovering/Resolving]
